FAERS Safety Report 19503560 (Version 2)
Quarter: 2021Q3

REPORT INFORMATION
  Report Type: Spontaneous
  Country: US (occurrence: US)
  Receive Date: 20210707
  Receipt Date: 20210709
  Transmission Date: 20211014
  Serious: Yes (Life-Threatening, Hospitalization, Other)
  Sender: FDA-Public Use
  Company Number: US-ASTRAZENECA-2021A578816

PATIENT
  Age: 65 Year
  Sex: Female

DRUGS (2)
  1. SEROQUEL [Suspect]
     Active Substance: QUETIAPINE FUMARATE
     Dosage: UNKNOWN
     Route: 048
  2. DEPAKOTE [Concomitant]
     Active Substance: DIVALPROEX SODIUM
     Route: 065

REACTIONS (10)
  - Head injury [Unknown]
  - Dysphagia [Unknown]
  - Fall [Unknown]
  - Bipolar disorder [Unknown]
  - Pharyngitis [Unknown]
  - Secretion discharge [Unknown]
  - Cerebral haemorrhage [Unknown]
  - Skull fracture [Unknown]
  - Pneumonia aspiration [Unknown]
  - Jaw fracture [Unknown]
